FAERS Safety Report 11147085 (Version 1)
Quarter: 2015Q2

REPORT INFORMATION
  Report Type: Report from Study
  Country: US (occurrence: US)
  Receive Date: 20150528
  Receipt Date: 20150528
  Transmission Date: 20150821
  Serious: Yes (Other)
  Sender: FDA-Public Use
  Company Number: US-SA-2015SA072833

PATIENT
  Age: 66 Year
  Sex: Female

DRUGS (1)
  1. LANTUS [Suspect]
     Active Substance: INSULIN GLARGINE
     Indication: DIABETES MELLITUS
     Dosage: DOSE: 120
     Route: 065

REACTIONS (8)
  - Myocardial infarction [Unknown]
  - Gastrooesophageal reflux disease [Unknown]
  - Cardiac operation [Unknown]
  - Intervertebral disc disorder [Unknown]
  - Systemic lupus erythematosus [Unknown]
  - Irritable bowel syndrome [Unknown]
  - Activities of daily living impaired [Unknown]
  - Depression [Unknown]

NARRATIVE: CASE EVENT DATE: 2012
